FAERS Safety Report 4498096-4 (Version None)
Quarter: 2004Q3

REPORT INFORMATION
  Report Type: 
  Country: None (occurrence: None)
  Receive Date: 20040927
  Receipt Date: 20040728
  Transmission Date: 20050211
  Serious: No
  Sender: FDA-Public Use
  Company Number: USA040773828

PATIENT
  Age: 45 Year
  Sex: Female
  Weight: 98 kg

DRUGS (2)
  1. STRATTERA [Suspect]
     Dates: start: 20040601
  2. ATENOLOL [Concomitant]

REACTIONS (3)
  - DIZZINESS [None]
  - NAUSEA [None]
  - SOMNOLENCE [None]
